FAERS Safety Report 10881223 (Version 2)
Quarter: 2015Q1

REPORT INFORMATION
  Report Type: Spontaneous
  Country: SE (occurrence: SE)
  Receive Date: 20150303
  Receipt Date: 20150303
  Transmission Date: 20150721
  Serious: Yes (Other)
  Sender: FDA-Public Use
  Company Number: SE-JNJFOC-20150216073

PATIENT
  Age: 51 Year
  Sex: Female
  Weight: 78 kg

DRUGS (2)
  1. XARELTO [Suspect]
     Active Substance: RIVAROXABAN
     Indication: EMBOLISM VENOUS
     Route: 048
     Dates: start: 201407
  2. XARELTO [Suspect]
     Active Substance: RIVAROXABAN
     Indication: THROMBOSIS
     Route: 048
     Dates: start: 201407

REACTIONS (3)
  - Dry eye [Not Recovered/Not Resolved]
  - Eczema [Not Recovered/Not Resolved]
  - Food allergy [Not Recovered/Not Resolved]

NARRATIVE: CASE EVENT DATE: 20140930
